FAERS Safety Report 6023724-1 (Version None)
Quarter: 2008Q4

REPORT INFORMATION
  Report Type: 
  Country: None (occurrence: None)
  Receive Date: 20081223
  Receipt Date: 20081209
  Transmission Date: 20090506
  Serious: Yes (Other)
  Sender: FDA-Public Use
  Company Number: 2008S1012262

PATIENT
  Age: 85 Year
  Sex: Male

DRUGS (12)
  1. SODIUM PHOSPHATES [Suspect]
     Indication: GASTROINTESTINAL SCAN
     Dosage: 45 ML; PO
     Route: 048
     Dates: start: 20081020, end: 20081020
  2. ENALAPRIL MALEATE [Concomitant]
  3. EFFEXOR [Concomitant]
  4. FOLACIN [Concomitant]
  5. FERROUS SULFATE TAB [Concomitant]
  6. FUROSEMIDE [Concomitant]
  7. SPIRONOLACTONE [Concomitant]
  8. ACETYLSALICYLIC ACID SRT [Concomitant]
  9. LACTULOSE [Concomitant]
  10. GLUCOBAY [Concomitant]
  11. ATENOLOL [Concomitant]
  12. CILAXORAL [Concomitant]

REACTIONS (3)
  - ANGIOEDEMA [None]
  - LARYNGEAL OEDEMA [None]
  - OBSTRUCTIVE AIRWAYS DISORDER [None]
